FAERS Safety Report 5710940-9 (Version None)
Quarter: 2008Q2

REPORT INFORMATION
  Report Type: 
  Country: None (occurrence: None)
  Receive Date: 20080421
  Receipt Date: 20080411
  Transmission Date: 20081010
  Serious: Yes (Death)
  Sender: FDA-Public Use
  Company Number: PHBS2008US04056

PATIENT
  Age: 45 Year
  Sex: Male

DRUGS (10)
  1. TACROLIMUS [Suspect]
     Indication: LIVER TRANSPLANT
  2. MYCOPHENOLATE MOFETIL [Concomitant]
  3. PREDNISONE [Concomitant]
  4. PROPRANOLOL [Concomitant]
  5. SULFAMETHOXAZOLE AND TRIMETHOPRIM [Concomitant]
  6. OMEPRAZOLE [Concomitant]
  7. VITAMIN CAP [Concomitant]
  8. THIAMINE [Concomitant]
  9. FOLATE SODIUM [Concomitant]
  10. CYCLOSPORINE [Suspect]
     Indication: LIVER TRANSPLANT

REACTIONS (12)
  - BACTERAEMIA [None]
  - DISSEMINATED CRYPTOCOCCOSIS [None]
  - ELECTROENCEPHALOGRAM ABNORMAL [None]
  - HAEMODIALYSIS [None]
  - HYPERREFLEXIA [None]
  - MENINGITIS CRYPTOCOCCAL [None]
  - MUSCULOSKELETAL STIFFNESS [None]
  - PHOTOPHOBIA [None]
  - PYREXIA [None]
  - RENAL FAILURE [None]
  - SEPSIS [None]
  - SPEECH DISORDER [None]
